FAERS Safety Report 9886542 (Version 2)
Quarter: 2014Q2

REPORT INFORMATION
  Report Type: Spontaneous
  Country: US (occurrence: US)
  Receive Date: 20140210
  Receipt Date: 20140410
  Transmission Date: 20141212
  Serious: Yes (Hospitalization)
  Sender: FDA-Public Use
  Company Number: US-PFIZER INC-2014037252

PATIENT
  Age: 73 Year
  Sex: Female
  Weight: 88.89 kg

DRUGS (2)
  1. PHENYTOIN [Suspect]
     Indication: GENERALISED TONIC-CLONIC SEIZURE
     Dosage: UNK
  2. PHENYTOIN [Suspect]
     Indication: EPILEPSY

REACTIONS (1)
  - Malaise [Unknown]
